FAERS Safety Report 6451368-6 (Version None)
Quarter: 2009Q4

REPORT INFORMATION
  Report Type: 
  Country: None (occurrence: None)
  Receive Date: 20091123
  Receipt Date: 20091118
  Transmission Date: 20100525
  Serious: Yes (Hospitalization)
  Sender: FDA-Public Use
  Company Number: FR-TEVA-215774ISR

PATIENT
  Sex: Male

DRUGS (3)
  1. AZILECT [Suspect]
     Indication: PARKINSON'S DISEASE
     Route: 048
     Dates: start: 20090701, end: 20091101
  2. MADOPAR [Concomitant]
     Indication: PARKINSON'S DISEASE
     Dosage: 250MG TID
  3. MADOPAR [Concomitant]
     Dosage: 125MG OAD

REACTIONS (1)
  - ARRHYTHMIA [None]
